FAERS Safety Report 4421658-7 (Version None)
Quarter: 2004Q3

REPORT INFORMATION
  Report Type: 
  Country: None (occurrence: None)
  Receive Date: 20040804
  Receipt Date: 20040720
  Transmission Date: 20050211
  Serious: Yes (Life-Threatening, Other)
  Sender: FDA-Public Use
  Company Number: 2003US005723

PATIENT
  Sex: Female

DRUGS (1)
  1. ADENOSCAN [Suspect]
     Indication: SCAN MYOCARDIAL PERFUSION
     Dosage: INTRAVENOUS
     Route: 042
     Dates: start: 20031028, end: 20031028

REACTIONS (3)
  - CONVULSION [None]
  - POST PROCEDURAL COMPLICATION [None]
  - RESPIRATORY ARREST [None]
